FAERS Safety Report 8337139-4 (Version None)
Quarter: 2012Q2

REPORT INFORMATION
  Report Type: 
  Country: None (occurrence: None)
  Receive Date: 20120504
  Receipt Date: 20110719
  Transmission Date: 20120825
  Serious: No
  Sender: FDA-Public Use
  Company Number: US-TEVA-2011003814

PATIENT
  Sex: Female
  Weight: 124.4 kg

DRUGS (10)
  1. COPAXONE [Concomitant]
  2. GLYBURIDE [Concomitant]
  3. ZETIA [Concomitant]
  4. METFORMIN HCL [Concomitant]
  5. LYRICA [Concomitant]
  6. NUVIGIL [Suspect]
     Indication: FATIGUE
     Dosage: 150 MILLIGRAM;
     Route: 048
     Dates: start: 20090101
  7. PRAVASTATIN [Concomitant]
  8. NUVIGIL [Suspect]
     Dosage: 225 MILLIGRAM;
     Route: 048
  9. NUVIGIL [Suspect]
     Dosage: 150 MILLIGRAM;
     Route: 048
  10. LISINOPRIL [Concomitant]

REACTIONS (3)
  - FALL [None]
  - DRUG TOLERANCE [None]
  - INTENTIONAL DRUG MISUSE [None]
